FAERS Safety Report 20432349 (Version 1)
Quarter: 2022Q1

REPORT INFORMATION
  Report Type: Spontaneous
  Country: DE (occurrence: None)
  Receive Date: 20220204
  Receipt Date: 20220204
  Transmission Date: 20220423
  Serious: Yes (Other)
  Sender: FDA-Public Use
  Company Number: 2022A052626

PATIENT
  Age: 55 Year
  Sex: Male
  Weight: 90.5 kg

DRUGS (1)
  1. ACLIDINIUM BROMIDE [Suspect]
     Active Substance: ACLIDINIUM BROMIDE
     Indication: Chronic obstructive pulmonary disease
     Dosage: 2 X 1 DOSES (ACTS WITHIN 5 MIN)
     Route: 055
     Dates: start: 201908

REACTIONS (6)
  - Condition aggravated [Recovered/Resolved]
  - Dyspnoea exertional [Unknown]
  - Asphyxia [Unknown]
  - Secretion discharge [Unknown]
  - Productive cough [Unknown]
  - Misophonia [Unknown]
